FAERS Safety Report 4802639-8 (Version None)
Quarter: 2005Q4

REPORT INFORMATION
  Report Type: 
  Country: None (occurrence: None)
  Receive Date: 20051014
  Receipt Date: 20050517
  Transmission Date: 20060501
  Serious: Yes (Other)
  Sender: FDA-Public Use
  Company Number: 2005076972

PATIENT
  Age: 26 Year
  Sex: Male
  Weight: 68.0396 kg

DRUGS (2)
  1. NEURONTIN [Suspect]
     Indication: CONVULSION
     Dosage: 2400MG (800MG 3 IN 1 D)
  2. LAMICTAL [Concomitant]

REACTIONS (1)
  - CONVULSION [None]
